FAERS Safety Report 14227567 (Version 1)
Quarter: 2017Q4

REPORT INFORMATION
  Report Type: Report from Study
  Country: US (occurrence: US)
  Receive Date: 20171127
  Receipt Date: 20171127
  Transmission Date: 20180321
  Serious: Yes (Hospitalization)
  Sender: FDA-Public Use
  Company Number: US-BAYER-2017-223683

PATIENT
  Age: 55 Year
  Sex: Male

DRUGS (1)
  1. STIVARGA [Suspect]
     Active Substance: REGORAFENIB
     Indication: RECTAL CANCER
     Dosage: 80 MG DAILY
     Route: 048
     Dates: start: 20170822, end: 20171109

REACTIONS (3)
  - Pneumonia [None]
  - Off label use [None]
  - Drug ineffective [None]

NARRATIVE: CASE EVENT DATE: 20171109
